FAERS Safety Report 19393053 (Version 1)
Quarter: 2021Q2

REPORT INFORMATION
  Report Type: Spontaneous
  Country: US (occurrence: US)
  Receive Date: 20210608
  Receipt Date: 20210608
  Transmission Date: 20210717
  Serious: Yes (Death)
  Sender: FDA-Public Use
  Company Number: None

PATIENT
  Age: 77 Year
  Sex: Male

DRUGS (9)
  1. ROUSUVASTATIN [Concomitant]
  2. RAMIPRIL. [Concomitant]
     Active Substance: RAMIPRIL
  3. ZOLPIDEM [Concomitant]
     Active Substance: ZOLPIDEM TARTRATE
  4. LEVOTHYROXIN [Concomitant]
     Active Substance: LEVOTHYROXINE
  5. METOPROL SUC [Concomitant]
  6. DILTIAZEM. [Concomitant]
     Active Substance: DILTIAZEM
  7. REPATHA [Suspect]
     Active Substance: EVOLOCUMAB
     Indication: ARTERIOSCLEROSIS CORONARY ARTERY
     Dosage: ?          OTHER FREQUENCY:EVERY 2 WEEKS;?
     Route: 058
     Dates: start: 20200211, end: 20210601
  8. EZETIMIBE. [Concomitant]
     Active Substance: EZETIMIBE
  9. HYDROCHLOROT [Concomitant]
     Active Substance: HYDROCHLOROTHIAZIDE

REACTIONS (1)
  - Death [None]

NARRATIVE: CASE EVENT DATE: 20210601
